FAERS Safety Report 10679099 (Version 1)
Quarter: 2014Q4

REPORT INFORMATION
  Report Type: Spontaneous
  Country: FR (occurrence: FR)
  Receive Date: 20141229
  Receipt Date: 20141229
  Transmission Date: 20150529
  Serious: Yes (Hospitalization)
  Sender: FDA-Public Use
  Company Number: FR-SA-2014SA178315

PATIENT
  Age: 79 Year
  Sex: Male

DRUGS (15)
  1. IXPRIM [Concomitant]
     Active Substance: ACETAMINOPHEN\TRAMADOL HYDROCHLORIDE
     Dosage: DOSE: 1 TO 4 TABLET/DAY
     Route: 048
     Dates: start: 20140904, end: 20140924
  2. TRIATEC [Suspect]
     Active Substance: RAMIPRIL
     Dosage: SORED TABLET
     Route: 048
     Dates: start: 20140904
  3. FORLAX [Concomitant]
     Active Substance: POLYETHYLENE GLYCOL 4000
     Route: 048
     Dates: start: 20140904
  4. JANUVIA [Concomitant]
     Active Substance: SITAGLIPTIN PHOSPHATE
     Route: 048
     Dates: start: 20121115, end: 20140924
  5. DUSPATALIN [Concomitant]
     Active Substance: MEBEVERINE HYDROCHLORIDE
     Dosage: STRENGTH: 200 MG
     Route: 048
     Dates: start: 20140904, end: 20140924
  6. DOLIPRANE [Concomitant]
     Active Substance: ACETAMINOPHEN
     Dosage: STRENGTH: 1000 MG, DOSE: 1 TO 4 TABLET/DAY
     Route: 048
     Dates: start: 20140904
  7. STILNOX [Concomitant]
     Active Substance: ZOLPIDEM TARTRATE
     Route: 048
     Dates: start: 20140924
  8. LASILIX FAIBLE [Suspect]
     Active Substance: FUROSEMIDE
     Route: 048
     Dates: start: 20140904
  9. ALDACTONE [Suspect]
     Active Substance: SPIRONOLACTONE
     Route: 048
     Dates: start: 20140904, end: 20140918
  10. ELISOR [Concomitant]
     Active Substance: PRAVASTATIN SODIUM
     Dosage: STRENGTH: 20 MG
     Route: 048
     Dates: start: 20140904
  11. DIAMICRON [Concomitant]
     Active Substance: GLICLAZIDE
     Dosage: STRENGTH: 60  MG,  DIVISIBLE TABLET FOR MODIFIED RELEASE
     Route: 048
     Dates: start: 20140904, end: 20140924
  12. BEDELIX [Concomitant]
     Route: 048
     Dates: start: 20140904, end: 20140924
  13. ISOPTIN [Concomitant]
     Active Substance: VERAPAMIL HYDROCHLORIDE
     Dosage: STRENGTH:  24 0  MG, FORM: FILM-COATED DIVISIBLE TABLET FOR PROLONGED RELEASE
     Route: 048
     Dates: start: 20140904
  14. PREVISCAN [Concomitant]
     Active Substance: FLUINDIONE
     Dosage: (DEPENDING ON INTERNATIONAL NORMALIZED RATIO (INR))
     Route: 048
     Dates: start: 20140904
  15. LEXOMIL [Concomitant]
     Active Substance: BROMAZEPAM
     Route: 048
     Dates: start: 20140904

REACTIONS (2)
  - Hyperkalaemia [Recovered/Resolved]
  - Hyponatraemia [Recovered/Resolved]

NARRATIVE: CASE EVENT DATE: 20140917
